FAERS Safety Report 4960350-7 (Version None)
Quarter: 2006Q1

REPORT INFORMATION
  Report Type: 
  Country: None (occurrence: None)
  Receive Date: 20060328
  Receipt Date: 20060313
  Transmission Date: 20060701
  Serious: Yes (Death)
  Sender: FDA-Public Use
  Company Number: 2006MP000009

PATIENT
  Age: 49 Year
  Sex: Male

DRUGS (5)
  1. AGGRASTAT [Suspect]
     Indication: CAROTID ARTERY OCCLUSION
     Dosage: 0.4 NG/KG/MIN; IV; SEE IMAGE
     Route: 042
  2. AGGRASTAT [Suspect]
     Indication: CEREBROVASCULAR ACCIDENT
     Dosage: 0.4 NG/KG/MIN; IV; SEE IMAGE
     Route: 042
  3. HEPARIN [Suspect]
     Indication: CAROTID ARTERY OCCLUSION
     Dosage: 1000 IU/HR; IV
     Route: 042
  4. HEPARIN [Suspect]
     Indication: CEREBROVASCULAR ACCIDENT
     Dosage: 1000 IU/HR; IV
     Route: 042
  5. UROKINASE [Concomitant]

REACTIONS (3)
  - CEREBRAL INFARCTION [None]
  - OFF LABEL USE [None]
  - PULMONARY EMBOLISM [None]
